FAERS Safety Report 19861054 (Version 1)
Quarter: 2021Q3

REPORT INFORMATION
  Report Type: Spontaneous
  Country: GB (occurrence: GB)
  Receive Date: 20210921
  Receipt Date: 20210921
  Transmission Date: 20211014
  Serious: Yes (Other)
  Sender: FDA-Public Use
  Company Number: NVSC2021GB209157

PATIENT
  Age: 79 Year
  Sex: Male
  Weight: 77.56 kg

DRUGS (4)
  1. FARAMSIL [Suspect]
     Active Substance: TAMSULOSIN HYDROCHLORIDE
     Indication: PROSTATOMEGALY
     Dosage: 400 MG
     Route: 048
     Dates: start: 20180601
  2. FINASTERIDE. [Suspect]
     Active Substance: FINASTERIDE
     Indication: PROSTATOMEGALY
     Dosage: 5 MG
     Route: 048
     Dates: start: 201804
  3. ATORVASTATIN [Concomitant]
     Active Substance: ATORVASTATIN
     Indication: PRODUCT USED FOR UNKNOWN INDICATION
     Dosage: UNK
     Route: 065
  4. METFORMIN [Concomitant]
     Active Substance: METFORMIN HYDROCHLORIDE
     Indication: PRODUCT USED FOR UNKNOWN INDICATION
     Dosage: UNK
     Route: 065

REACTIONS (3)
  - Eczema [Not Recovered/Not Resolved]
  - Pain of skin [Not Recovered/Not Resolved]
  - Pruritus [Not Recovered/Not Resolved]

NARRATIVE: CASE EVENT DATE: 2019
